FAERS Safety Report 8854679 (Version 5)
Quarter: 2015Q2

REPORT INFORMATION
  Report Type: Spontaneous
  Country: US (occurrence: US)
  Receive Date: 20121023
  Receipt Date: 20150430
  Transmission Date: 20150821
  Serious: Yes (Disabling)
  Sender: FDA-Public Use
  Company Number: US-009507513-1210USA006852

PATIENT
  Sex: Male

DRUGS (2)
  1. PROPECIA [Suspect]
     Active Substance: FINASTERIDE
     Indication: ANDROGENETIC ALOPECIA
     Dosage: 1 MG, QD
     Route: 048
     Dates: start: 20091002, end: 20110412
  2. NASONEX [Concomitant]
     Active Substance: MOMETASONE FUROATE
     Dosage: UNK
     Dates: start: 2000

REACTIONS (16)
  - Acne [Unknown]
  - Anxiety [Recovered/Resolved]
  - Fatigue [Unknown]
  - Sexual dysfunction [Unknown]
  - Depression [Unknown]
  - Libido decreased [Unknown]
  - Vitamin D deficiency [Recovering/Resolving]
  - Seasonal allergy [Unknown]
  - Cognitive disorder [Unknown]
  - Infection [Unknown]
  - Blood prolactin increased [Unknown]
  - Erectile dysfunction [Unknown]
  - Ejaculation disorder [Unknown]
  - Performance fear [Recovered/Resolved]
  - Partner stress [Recovered/Resolved]
  - Sinus disorder [Recovered/Resolved]

NARRATIVE: CASE EVENT DATE: 201004
